FAERS Safety Report 13975054 (Version 1)
Quarter: 2017Q3

REPORT INFORMATION
  Report Type: Spontaneous
  Country: US (occurrence: None)
  Receive Date: 20170915
  Receipt Date: 20170915
  Transmission Date: 20171128
  Serious: No
  Sender: FDA-Public Use
  Company Number: None

PATIENT
  Sex: Male

DRUGS (2)
  1. OLANZAPINE. [Suspect]
     Active Substance: OLANZAPINE
  2. RISPERDAL [Suspect]
     Active Substance: RISPERIDONE

REACTIONS (3)
  - Chest wall tumour [None]
  - Penis disorder [None]
  - Gynaecomastia [None]
